FAERS Safety Report 18286977 (Version 1)
Quarter: 2020Q3

REPORT INFORMATION
  Report Type: Spontaneous
  Country: FR (occurrence: FR)
  Receive Date: 20200921
  Receipt Date: 20200921
  Transmission Date: 20201103
  Serious: Yes (Hospitalization, Other)
  Sender: FDA-Public Use
  Company Number: FR-AUROBINDO-AUR-APL-2020-048316

PATIENT
  Age: 42 Year
  Sex: Male

DRUGS (3)
  1. METHADONE [Suspect]
     Active Substance: METHADONE HYDROCHLORIDE
     Indication: PRODUCT USED FOR UNKNOWN INDICATION
     Dosage: UNK(NR)
     Route: 065
     Dates: start: 202005
  2. TRAMADOL. [Suspect]
     Active Substance: TRAMADOL
     Indication: INTENTIONAL PRODUCT MISUSE
     Dosage: UNK (NR)
     Route: 048
     Dates: start: 20200511, end: 20200511
  3. CYAMEMAZINE [Suspect]
     Active Substance: CYAMEMAZINE
     Indication: INTENTIONAL PRODUCT MISUSE
     Dosage: UNK (NR)
     Route: 048
     Dates: start: 20200511, end: 20200511

REACTIONS (4)
  - Drug abuse [Unknown]
  - Ataxia [Recovered/Resolved]
  - Psychomotor skills impaired [Recovered/Resolved]
  - Dysarthria [Recovered/Resolved]

NARRATIVE: CASE EVENT DATE: 202005
